FAERS Safety Report 21000253 (Version 1)
Quarter: 2022Q2

REPORT INFORMATION
  Report Type: Report from Study
  Country: DE (occurrence: DE)
  Receive Date: 20220623
  Receipt Date: 20220623
  Transmission Date: 20220721
  Serious: Yes (Hospitalization)
  Sender: FDA-Public Use
  Company Number: DE-CELGENE-DEU-20191110155

PATIENT
  Age: 76 Year
  Sex: Male

DRUGS (26)
  1. DEXAMETHASONE [Suspect]
     Active Substance: DEXAMETHASONE
     Indication: Plasma cell myeloma
     Dosage: UNIT DOSE: 20 MILLIGRAM, FREQUENCY TIME: 1 DAY, DURATION: 1 DAY
     Route: 048
     Dates: start: 20190808, end: 20190809
  2. DEXAMETHASONE [Suspect]
     Active Substance: DEXAMETHASONE
     Dosage: UNIT DOSE: 20 MILLIGRAM, FREQUENCY TIME: 1 DAY, DURATION: 1 DAY
     Route: 048
     Dates: start: 20190627, end: 20190628
  3. DEXAMETHASONE [Suspect]
     Active Substance: DEXAMETHASONE
     Dosage: UNIT DOSE: 20 MILLIGRAM, FREQUENCY TIME: 1 DAY, DURATION: 1 DAY
     Route: 048
     Dates: start: 20190805, end: 20190806
  4. DEXAMETHASONE [Suspect]
     Active Substance: DEXAMETHASONE
     Dosage: UNIT DOSE: 20 MILLIGRAM, FREQUENCY TIME: 1 DAY, DURATION: 1 DAY
     Route: 048
     Dates: start: 20190715, end: 20190716
  5. DEXAMETHASONE [Suspect]
     Active Substance: DEXAMETHASONE
     Dosage: UNIT DOSE: 20 MILLIGRAM, FREQUENCY TIME: 1 DAY
     Route: 048
     Dates: start: 20190815, end: 20190815
  6. DEXAMETHASONE [Suspect]
     Active Substance: DEXAMETHASONE
     Dosage: UNIT DOSE: 20 MILLIGRAM, FREQUENCY TIME: 1 DAY, DURATION: 1 DAY
     Route: 048
     Dates: start: 20190701, end: 20190702
  7. DEXAMETHASONE [Suspect]
     Active Substance: DEXAMETHASONE
     Dosage: UNIT DOSE: 20 MILLIGRAM, FREQUENCY TIME: 1 DAY, DURATION: 1 DAY
     Route: 048
     Dates: start: 20190826, end: 20190827
  8. DEXAMETHASONE [Suspect]
     Active Substance: DEXAMETHASONE
     Dosage: UNIT DOSE: 20 MILLIGRAM, FREQUENCY TIME: 1 DAY, DURATION: 1 DAY
     Route: 048
     Dates: start: 20190624, end: 20190625
  9. DEXAMETHASONE [Suspect]
     Active Substance: DEXAMETHASONE
     Dosage: UNIT DOSE: 20 MILLIGRAM, FREQUENCY TIME: 1 DAY, DURATION: 1 DAY
     Route: 048
     Dates: start: 20190722, end: 20190723
  10. DEXAMETHASONE [Suspect]
     Active Substance: DEXAMETHASONE
     Dosage: UNIT DOSE: 20 MILLIGRAM, FREQUENCY TIME: 1 DAY, DURATION: 1 DAY
     Route: 048
     Dates: start: 20190725, end: 20190726
  11. DEXAMETHASONE [Suspect]
     Active Substance: DEXAMETHASONE
     Dosage: UNIT DOSE: 20 MILLIGRAM, FREQUENCY TIME: 1 DAY, DURATION: 1 DAY
     Route: 048
     Dates: start: 20190704, end: 20190705
  12. DEXAMETHASONE [Suspect]
     Active Substance: DEXAMETHASONE
     Dosage: UNIT DOSE: 20 MILLIGRAM, FREQUENCY TIME: 1 DAY, DURATION: 1 DAY
     Route: 048
     Dates: start: 20190718, end: 20190719
  13. DEXAMETHASONE [Suspect]
     Active Substance: DEXAMETHASONE
     Dosage: UNIT DOSE: 20 MILLIGRAM, FREQUENCY TIME: 1 DAY, DURATION: 1 DAY
     Route: 048
     Dates: start: 20190812, end: 20190813
  14. VELCADE [Suspect]
     Active Substance: BORTEZOMIB
     Indication: Plasma cell myeloma
     Dosage: UNIT DOSE: 1.3 MILLIGRAM/SQ. METER, FREQUENCY TIME: 1 DAY
     Route: 058
     Dates: start: 20190704, end: 20190704
  15. VELCADE [Suspect]
     Active Substance: BORTEZOMIB
     Dosage: UNIT DOSE: 1.3 MILLIGRAM/SQ. METER, FREQUENCY TIME: 1 DAY
     Route: 058
     Dates: start: 20190624, end: 20190624
  16. VELCADE [Suspect]
     Active Substance: BORTEZOMIB
     Dosage: UNIT DOSE: 1.3 MILLIGRAM/SQ. METER, FREQUENCY TIME: 1 DAY
     Route: 058
     Dates: start: 20190718, end: 20190718
  17. VELCADE [Suspect]
     Active Substance: BORTEZOMIB
     Dosage: UNIT DOSE: 1.3 MILLIGRAM/SQ. METER, FREQUENCY TIME: 1 DAY
     Route: 058
     Dates: start: 20190722, end: 20190722
  18. VELCADE [Suspect]
     Active Substance: BORTEZOMIB
     Dosage: UNIT DOSE: 1.3 MILLIGRAM/SQ. METER, FREQUENCY TIME: 1 DAY
     Route: 058
     Dates: start: 20190701, end: 20190701
  19. VELCADE [Suspect]
     Active Substance: BORTEZOMIB
     Dosage: UNIT DOSE: 1.3 MILLIGRAM/SQ. METER, FREQUENCY TIME: 1 DAY
     Route: 058
     Dates: start: 20190627, end: 20190627
  20. VELCADE [Suspect]
     Active Substance: BORTEZOMIB
     Dosage: UNIT DOSE: 1.3 MILLIGRAM/SQ. METER, FREQUENCY TIME: 1 DAY
     Route: 058
     Dates: start: 20190715, end: 20190715
  21. VELCADE [Suspect]
     Active Substance: BORTEZOMIB
     Dosage: UNIT DOSE: 1.3 MILLIGRAM/SQ. METER, FREQUENCY TIME: 1 DAY
     Route: 058
     Dates: start: 20190725, end: 20190725
  22. REVLIMID [Suspect]
     Active Substance: LENALIDOMIDE
     Indication: Plasma cell myeloma
     Dosage: FORM OF ADMIN: CAPSULES, UNIT DOSE: 10 MILLIGRAM, FREQUENCY TIME: 1 DAY, DURATION: 13 DAYS
     Route: 048
     Dates: start: 20190624, end: 20190707
  23. REVLIMID [Suspect]
     Active Substance: LENALIDOMIDE
     Dosage: FORM OF ADMIN: CAPSULES, UNIT DOSE: 10 MILLIGRAM, FREQUENCY TIME: 1 DAY, DURATION: 13 DAYS
     Route: 048
     Dates: start: 20190715, end: 20190728
  24. DIMETHINDENE MALEATE [Concomitant]
     Active Substance: DIMETHINDENE MALEATE
     Indication: Antiallergic therapy
     Dosage: UNIT DOSE: 4 MILLIGRAM, FREQUENCY TIME: 1 DAY
     Route: 041
  25. PREDNISOLONE [Concomitant]
     Active Substance: PREDNISOLONE
     Indication: Antiallergic therapy
     Dosage: UNIT DOSE: 100 MILLIGRAM, FREQUENCY TIME: 1 DAY
     Route: 041
  26. RANITIDINE [Concomitant]
     Active Substance: RANITIDINE
     Indication: Antiallergic therapy
     Dosage: UNIT DOSE: 50 MILLIGRAM, FREQUENCY TIME: 1 DAY
     Route: 041

REACTIONS (1)
  - Drug eruption [Recovered/Resolved]

NARRATIVE: CASE EVENT DATE: 20191123
